FAERS Safety Report 24433733 (Version 4)
Quarter: 2024Q4

REPORT INFORMATION
  Report Type: Spontaneous
  Country: US (occurrence: US)
  Receive Date: 20241014
  Receipt Date: 20241018
  Transmission Date: 20250115
  Serious: Yes (Other)
  Sender: ROCHE
  Company Number: US-ROCHE-10000101646

PATIENT
  Age: 34 Year
  Sex: Female

DRUGS (1)
  1. VABYSMO [Suspect]
     Active Substance: FARICIMAB-SVOA
     Indication: Diabetic retinopathy
     Route: 065

REACTIONS (5)
  - Vasculitis [Unknown]
  - COVID-19 [Unknown]
  - Ischaemia [Unknown]
  - Nephropathy [Unknown]
  - Off label use [Unknown]
